FAERS Safety Report 16157532 (Version 1)
Quarter: 2019Q2

REPORT INFORMATION
  Report Type: Spontaneous
  Country: US (occurrence: US)
  Receive Date: 20190228
  Receipt Date: 20190228
  Transmission Date: 20190711
  Serious: Yes (Hospitalization)
  Sender: FDA-Public Use
  Company Number: None

PATIENT
  Age: 51 Year
  Sex: Male
  Weight: 86 kg

DRUGS (1)
  1. XELODA [Suspect]
     Active Substance: CAPECITABINE
     Dates: end: 20190111

REACTIONS (6)
  - Tachycardia [None]
  - Pancreatic injury [None]
  - Hypertension [None]
  - Procedural complication [None]
  - Procedural haemorrhage [None]
  - Pain [None]

NARRATIVE: CASE EVENT DATE: 20190218
